FAERS Safety Report 14412943 (Version 1)
Quarter: 2018Q1

REPORT INFORMATION
  Report Type: Spontaneous
  Country: US (occurrence: US)
  Receive Date: 20180119
  Receipt Date: 20180119
  Transmission Date: 20180509
  Serious: Yes (Hospitalization)
  Sender: FDA-Public Use
  Company Number: None

PATIENT
  Age: 62 Year
  Sex: Male
  Weight: 55.3 kg

DRUGS (10)
  1. MVI [Concomitant]
     Active Substance: VITAMINS
  2. DRISDOL [Concomitant]
     Active Substance: ERGOCALCIFEROL
  3. LASIX [Concomitant]
     Active Substance: FUROSEMIDE
  4. CYANOCOBALAMIN. [Concomitant]
     Active Substance: CYANOCOBALAMIN
  5. APAP [Concomitant]
     Active Substance: ACETAMINOPHEN
  6. BOTOX [Concomitant]
     Active Substance: ONABOTULINUMTOXINA
  7. BC (ASPIRIN\CAFFEINE) [Suspect]
     Active Substance: ASPIRIN\CAFFEINE
     Indication: BACK PAIN
     Route: 048
  8. MAG OX [Concomitant]
     Active Substance: MAGNESIUM OXIDE
  9. DEXILANT [Concomitant]
     Active Substance: DEXLANSOPRAZOLE
  10. MIRALAX [Concomitant]
     Active Substance: POLYETHYLENE GLYCOL 3350

REACTIONS (3)
  - Dialysis [None]
  - Toxicity to various agents [None]
  - Intentional overdose [None]

NARRATIVE: CASE EVENT DATE: 20171030
